FAERS Safety Report 6763664-3 (Version None)
Quarter: 2010Q2

REPORT INFORMATION
  Report Type: 
  Country: None (occurrence: None)
  Receive Date: 20100610
  Receipt Date: 20100603
  Transmission Date: 20101027
  Serious: Yes (Other)
  Sender: FDA-Public Use
  Company Number: US-ABBOTT-10P-163-0649029-00

PATIENT
  Sex: Female
  Weight: 63.106 kg

DRUGS (6)
  1. HUMIRA [Suspect]
     Indication: CROHN'S DISEASE
     Dates: start: 20091214
  2. HUMIRA [Suspect]
     Dates: start: 20100308, end: 20100308
  3. HUMIRA [Suspect]
  4. HUMIRA [Suspect]
  5. OMEPRAZOLE [Concomitant]
     Indication: GASTROOESOPHAGEAL REFLUX DISEASE
  6. PREDNISONE [Concomitant]
     Indication: CROHN'S DISEASE

REACTIONS (3)
  - CROHN'S DISEASE [None]
  - HAEMATOCHEZIA [None]
  - WEIGHT DECREASED [None]
